FAERS Safety Report 7265493-3 (Version None)
Quarter: 2011Q1

REPORT INFORMATION
  Report Type: 
  Country: None (occurrence: None)
  Receive Date: 20110131
  Receipt Date: 20110127
  Transmission Date: 20110831
  Serious: Yes (Life-Threatening, Disabling, Other)
  Sender: FDA-Public Use
  Company Number: DE-JNJFOC-20110101470

PATIENT
  Sex: Female

DRUGS (2)
  1. RISPERDAL [Suspect]
     Indication: ILL-DEFINED DISORDER
     Route: 065
  2. RIVOTRIL [Concomitant]
     Route: 065

REACTIONS (16)
  - FEAR OF DEATH [None]
  - SUNBURN [None]
  - BRAIN NEOPLASM [None]
  - MASKED FACIES [None]
  - SENSORIMOTOR DISORDER [None]
  - MENTAL IMPAIRMENT [None]
  - BRAIN INJURY [None]
  - DEPRESSION [None]
  - NERVOUS SYSTEM DISORDER [None]
  - CHILLS [None]
  - COMA [None]
  - EPILEPSY [None]
  - DISABILITY [None]
  - INTELLIGENCE TEST ABNORMAL [None]
  - SPEECH DISORDER [None]
  - FEELING ABNORMAL [None]
